FAERS Safety Report 16290405 (Version 1)
Quarter: 2019Q2

REPORT INFORMATION
  Report Type: Spontaneous
  Country: US (occurrence: US)
  Receive Date: 20190508
  Receipt Date: 20190508
  Transmission Date: 20190711
  Serious: Yes (Other)
  Sender: FDA-Public Use
  Company Number: None

PATIENT
  Age: 45 Year
  Sex: Female
  Weight: 77.85 kg

DRUGS (7)
  1. ZOMIG NS SPRAY [Concomitant]
  2. TOPAMAX 50 MG [Concomitant]
  3. VITAMIN B COMPLEX [Concomitant]
     Active Substance: CYANOCOBALAMIN\DEXPANTHENOL\NIACINAMIDE\PYRIDOXINE HYDROCHLORIDE\RIBOFLAVIN 5^-PHOSPHATE SODIUM\THIAMINE HYDROCHLORIDE\VITAMIN B COMPLEX
  4. WOMENS MULTIVITAMIN [Concomitant]
  5. AIMOVIG [Suspect]
     Active Substance: ERENUMAB-AOOE
     Indication: MIGRAINE
     Dosage: ?          OTHER FREQUENCY:MONTHLY;?
     Route: 058
  6. DEXILANT CAPSULES [Concomitant]
  7. PHENTERMINE 25MG [Concomitant]

REACTIONS (7)
  - Suicidal ideation [None]
  - Hypoaesthesia [None]
  - Tinnitus [None]
  - Dizziness [None]
  - Neuropathy peripheral [None]
  - Alopecia [None]
  - Onychoclasis [None]

NARRATIVE: CASE EVENT DATE: 20190416
